FAERS Safety Report 5144173-4 (Version None)
Quarter: 2006Q4

REPORT INFORMATION
  Report Type: 
  Country: None (occurrence: None)
  Receive Date: 20061102
  Receipt Date: 20061102
  Transmission Date: 20070319
  Serious: No
  Sender: FDA-Public Use
  Company Number: None

PATIENT
  Age: 44 Year
  Sex: Female
  Weight: 68.0396 kg

DRUGS (1)
  1. NABUMETONE [Suspect]
     Indication: TENDONITIS
     Dosage: ONE TABLET   TWICE DAILY
     Dates: start: 20061018, end: 20061031

REACTIONS (7)
  - DYSPEPSIA [None]
  - INSOMNIA [None]
  - PHOTOSENSITIVITY REACTION [None]
  - SKIN EXFOLIATION [None]
  - SUNBURN [None]
  - SWELLING FACE [None]
  - URTICARIA [None]
